FAERS Safety Report 13664443 (Version 1)
Quarter: 2017Q2

REPORT INFORMATION
  Report Type: Spontaneous
  Country: US (occurrence: US)
  Receive Date: 20170618
  Receipt Date: 20170618
  Transmission Date: 20170830
  Serious: Yes (Hospitalization)
  Sender: FDA-Public Use
  Company Number: None

PATIENT
  Age: 82 Year
  Sex: Male

DRUGS (1)
  1. BUMETANIDE. [Suspect]
     Active Substance: BUMETANIDE
     Indication: CHRONIC KIDNEY DISEASE
     Route: 048
     Dates: start: 20170309, end: 20170405

REACTIONS (12)
  - Dysphagia [None]
  - Eating disorder [None]
  - Acute kidney injury [None]
  - Angioedema [None]
  - End stage renal disease [None]
  - Haemodialysis [None]
  - Clostridium difficile infection [None]
  - Pruritus [None]
  - Lip swelling [None]
  - Rash [None]
  - Device related infection [None]
  - Urticaria [None]

NARRATIVE: CASE EVENT DATE: 20170408
